FAERS Safety Report 11638548 (Version 1)
Quarter: 2015Q4

REPORT INFORMATION
  Report Type: Report from Study
  Country: US (occurrence: US)
  Receive Date: 20151016
  Receipt Date: 20151016
  Transmission Date: 20160304
  Serious: No
  Sender: FDA-Public Use
  Company Number: US-CELGENEUS-USA-2015086559

PATIENT

DRUGS (2)
  1. VIDAZA [Suspect]
     Active Substance: AZACITIDINE
     Indication: REFRACTORY ANAEMIA WITH RINGED SIDEROBLASTS
     Route: 065
  2. KELP TABLETS [Concomitant]
     Indication: REFRACTORY ANAEMIA WITH RINGED SIDEROBLASTS
     Route: 065

REACTIONS (3)
  - Hypothyroidism [Unknown]
  - Treatment failure [Unknown]
  - Haemochromatosis [Unknown]
